FAERS Safety Report 5748686-3 (Version None)
Quarter: 2008Q2

REPORT INFORMATION
  Report Type: 
  Country: None (occurrence: None)
  Receive Date: 20080522
  Receipt Date: 20080502
  Transmission Date: 20081010
  Serious: Yes (Other)
  Sender: FDA-Public Use
  Company Number: 2008AL003240

PATIENT
  Age: 66 Year
  Sex: Male

DRUGS (9)
  1. DIGOXIN [Suspect]
     Indication: CARDIAC DISORDER
     Dosage: 0.25MG DAILY PO
     Route: 048
  2. XANAX [Concomitant]
  3. TRICOR [Concomitant]
  4. KLONOPIN [Concomitant]
  5. LIPITOR [Concomitant]
  6. ACEBUTOLOL [Concomitant]
  7. AMLODIPINE [Concomitant]
  8. NIACIN [Concomitant]
  9. ASPIRIN [Concomitant]

REACTIONS (5)
  - ASTHENIA [None]
  - CARDIAC DISORDER [None]
  - DIZZINESS [None]
  - NAUSEA [None]
  - VOMITING [None]
